FAERS Safety Report 19171680 (Version 1)
Quarter: 2021Q2

REPORT INFORMATION
  Report Type: Spontaneous
  Country: US (occurrence: US)
  Receive Date: 20210422
  Receipt Date: 20210422
  Transmission Date: 20210717
  Serious: No
  Sender: FDA-Public Use
  Company Number: None

PATIENT
  Age: 47 Year
  Sex: Male
  Weight: 104 kg

DRUGS (1)
  1. CYCLOBENZAPRINE (CYCLOBENZAPRINE HCL 5MG TAB) [Suspect]
     Active Substance: CYCLOBENZAPRINE
     Indication: MUSCLE SPASMS
     Route: 048
     Dates: start: 20180210, end: 20180215

REACTIONS (4)
  - Respiratory muscle weakness [None]
  - Dyspnoea [None]
  - Sedation [None]
  - Respiratory depression [None]
